FAERS Safety Report 7184063-9 (Version None)
Quarter: 2010Q4

REPORT INFORMATION
  Report Type: 
  Country: None (occurrence: None)
  Receive Date: 20101222
  Receipt Date: 20101209
  Transmission Date: 20110411
  Serious: Yes (Hospitalization)
  Sender: FDA-Public Use
  Company Number: PHHY2010DE84497

PATIENT
  Age: 58 Year
  Sex: Male

DRUGS (1)
  1. CERTICAN [Suspect]
     Indication: LIVER TRANSPLANT

REACTIONS (1)
  - DEPRESSED LEVEL OF CONSCIOUSNESS [None]
